FAERS Safety Report 4468716-9 (Version None)
Quarter: 2004Q4

REPORT INFORMATION
  Report Type: 
  Country: None (occurrence: None)
  Receive Date: 20041007
  Receipt Date: 20041004
  Transmission Date: 20050328
  Serious: Yes (Hospitalization, Other)
  Sender: FDA-Public Use
  Company Number: NZ-MERCK-0410NZL00024

PATIENT
  Age: 78 Year
  Sex: Male

DRUGS (4)
  1. DICLOFENAC SODIUM [Concomitant]
     Route: 065
  2. GLUCOSAMINE [Concomitant]
     Route: 065
  3. METOPROLOL TARTRATE [Concomitant]
     Route: 065
  4. VIOXX [Suspect]
     Route: 065
     Dates: start: 20000101

REACTIONS (1)
  - MYOCARDIAL INFARCTION [None]
